FAERS Safety Report 8796086 (Version 2)
Quarter: 2012Q4

REPORT INFORMATION
  Report Type: 
  Country: GB (occurrence: GB)
  Receive Date: 20120919
  Receipt Date: 20121105
  Transmission Date: 20130627
  Serious: Yes (Other)
  Sender: FDA-Public Use
  Company Number: GB-B.I. PHARMACEUTICALS,INC./RIDGEFIELD-2012-UK-01200UK

PATIENT
  Age: 78 Year
  Sex: Male
  Weight: 82 kg

DRUGS (11)
  1. TRAJENTA [Suspect]
     Dates: start: 20120419, end: 20120515
  2. CYANOCOBALAMIN [Concomitant]
     Dosage: 50 mcg
     Route: 048
     Dates: start: 201203
  3. BISOPROLOL [Concomitant]
     Dosage: 10 mg
     Route: 048
     Dates: start: 2009
  4. ASPIRIN [Concomitant]
     Dosage: 75 mg
     Route: 048
     Dates: start: 1996
  5. INDORAMIN [Concomitant]
     Dosage: 40 mg
     Route: 048
     Dates: start: 1996
  6. IRBESARTAN [Concomitant]
     Dosage: 300 mg
     Route: 048
     Dates: start: 2004
  7. NITRAZEPAM [Concomitant]
     Dosage: 10 mg
     Route: 048
     Dates: start: 2004
  8. TADALAFIL [Concomitant]
     Route: 048
     Dates: start: 2004
  9. OMEPRAZOLE [Concomitant]
     Dosage: 20 mg
     Route: 048
     Dates: start: 2007
  10. BENDROFLUAZIDE [Concomitant]
     Dosage: 2.5 mg
     Route: 048
     Dates: start: 201012
  11. ATORVASTATIN [Concomitant]
     Dosage: 10 mg
     Route: 048
     Dates: start: 2001

REACTIONS (1)
  - Renal impairment [Recovered/Resolved]
